FAERS Safety Report 9220028 (Version 2)
Quarter: 2013Q2

REPORT INFORMATION
  Report Type: Spontaneous
  Country: US (occurrence: US)
  Receive Date: 20130409
  Receipt Date: 20130624
  Transmission Date: 20140414
  Serious: Yes (Other)
  Sender: FDA-Public Use
  Company Number: US-ROCHE-1209704

PATIENT
  Age: 63 Year
  Sex: Female

DRUGS (2)
  1. ACTILYSE [Suspect]
     Indication: CEREBRAL ARTERY OCCLUSION
     Route: 042
  2. UROKINASE [Suspect]
     Indication: CEREBRAL ARTERY OCCLUSION
     Route: 013

REACTIONS (1)
  - Injection site extravasation [Unknown]
